FAERS Safety Report 5286493-9 (Version None)
Quarter: 2007Q2

REPORT INFORMATION
  Report Type: 
  Country: None (occurrence: None)
  Receive Date: 20070404
  Receipt Date: 20070326
  Transmission Date: 20071010
  Serious: Yes (Hospitalization)
  Sender: FDA-Public Use
  Company Number: HQWYE164130MAR07

PATIENT
  Age: 48 Year
  Sex: Female

DRUGS (3)
  1. VENLAFAXINE HYDROCHLORIDE [Suspect]
     Indication: DEPRESSION
  2. LORMETAZEPAM [Concomitant]
  3. LAMOTRIGINE [Concomitant]

REACTIONS (7)
  - CONDITION AGGRAVATED [None]
  - DELUSION [None]
  - DEPRESSION [None]
  - DRUG SCREEN FALSE POSITIVE [None]
  - SCHIZOAFFECTIVE DISORDER [None]
  - SCHIZOPHRENIA, DISORGANISED TYPE [None]
  - THOUGHT BROADCASTING [None]
